FAERS Safety Report 20667765 (Version 3)
Quarter: 2022Q2

REPORT INFORMATION
  Report Type: Spontaneous
  Country: FR (occurrence: FR)
  Receive Date: 20220404
  Receipt Date: 20220503
  Transmission Date: 20220721
  Serious: Yes (Hospitalization, Other)
  Sender: FDA-Public Use
  Company Number: FR-Concordia Pharmaceuticals Inc.-GSH201703-001429

PATIENT

DRUGS (20)
  1. HYDROXYCHLOROQUINE SULFATE [Suspect]
     Active Substance: HYDROXYCHLOROQUINE SULFATE
     Indication: Hypertension
     Dosage: 2 DOSAGE FORM, QD
     Route: 048
     Dates: start: 201512
  2. HYDROXYCHLOROQUINE SULFATE [Suspect]
     Active Substance: HYDROXYCHLOROQUINE SULFATE
     Dosage: 200 MG, BID
     Route: 065
     Dates: start: 201512, end: 201606
  3. HYDROXYCHLOROQUINE SULFATE [Suspect]
     Active Substance: HYDROXYCHLOROQUINE SULFATE
     Dosage: 45 DOSAGE FORM, SINGLE
     Route: 048
     Dates: start: 20161127, end: 20161127
  4. REVLIMID [Suspect]
     Active Substance: LENALIDOMIDE
     Dosage: 5 MG, QD
     Route: 065
  5. NIFEDIPINE [Suspect]
     Active Substance: NIFEDIPINE
     Dosage: UNK (LP 30 1 PER DAY), QD
     Route: 065
  6. THALIDOMIDE [Suspect]
     Active Substance: THALIDOMIDE
     Indication: Chronic cutaneous lupus erythematosus
     Dosage: 1 DOSAGE FORM
     Route: 048
     Dates: start: 20160613
  7. THALIDOMIDE [Suspect]
     Active Substance: THALIDOMIDE
     Dosage: 28 DOSAGE FORM, SINGLE
     Route: 048
     Dates: start: 20161127, end: 20161127
  8. THALIDOMIDE [Suspect]
     Active Substance: THALIDOMIDE
     Dosage: 100 MG, QD
     Route: 065
  9. THALIDOMIDE [Suspect]
     Active Substance: THALIDOMIDE
     Dosage: 50 MG, QD
     Route: 065
  10. ALPRAZOLAM [Concomitant]
     Active Substance: ALPRAZOLAM
     Dosage: 0.5 DOSAGE FORM, QD
     Route: 065
     Dates: start: 201611
  11. ALPRAZOLAM [Concomitant]
     Active Substance: ALPRAZOLAM
     Dosage: 30 DOSAGE FORM, SINGLE
     Route: 065
     Dates: start: 20161127, end: 20161127
  12. ALPRAZOLAM [Concomitant]
     Active Substance: ALPRAZOLAM
     Dosage: UNK
     Route: 065
  13. ASPIRIN [Concomitant]
     Active Substance: ASPIRIN
     Dosage: UNK
  14. IMOVANE [Concomitant]
     Active Substance: ZOPICLONE
     Dosage: UNK
  15. DUPHALAC [Concomitant]
     Active Substance: LACTULOSE
     Dosage: UNK
  16. ACETAMINOPHEN [Concomitant]
     Active Substance: ACETAMINOPHEN
     Dosage: UNK
  17. RISPERDAL [Concomitant]
     Active Substance: RISPERIDONE
     Dosage: UNK
  18. MINERAL OIL [Concomitant]
     Active Substance: MINERAL OIL
     Dosage: UNK
  19. XANAX [Concomitant]
     Active Substance: ALPRAZOLAM
     Dosage: UNK
  20. TROPATEPINE HYDROCHLORIDE [Concomitant]
     Active Substance: TROPATEPINE HYDROCHLORIDE
     Dosage: UNK

REACTIONS (41)
  - Cardiac arrest [Unknown]
  - Delirium [Unknown]
  - Suicide attempt [Recovered/Resolved]
  - Arthralgia [Not Recovered/Not Resolved]
  - Depression [Unknown]
  - Depression [Recovering/Resolving]
  - Sleep apnoea syndrome [Unknown]
  - Toxicity to various agents [Unknown]
  - Chronic cutaneous lupus erythematosus [Unknown]
  - Hallucination, auditory [Unknown]
  - Systemic lupus erythematosus [Unknown]
  - Nightmare [Unknown]
  - Psychotic disorder [Unknown]
  - Weight decreased [Recovered/Resolved]
  - Loss of consciousness [Unknown]
  - Back pain [Unknown]
  - Sleep disorder [Unknown]
  - Foot fracture [Unknown]
  - Malaise [Unknown]
  - Frostbite [Recovering/Resolving]
  - Peripheral coldness [Recovering/Resolving]
  - Asthenia [Unknown]
  - Psychomotor retardation [Unknown]
  - Amnesia [Unknown]
  - Condition aggravated [Unknown]
  - Raynaud^s phenomenon [Unknown]
  - Persecutory delusion [Unknown]
  - Toxicity to various agents [Unknown]
  - Cyanosis [Unknown]
  - Depression [Unknown]
  - Rash erythematous [Unknown]
  - Mental disorder [Unknown]
  - Fatigue [Unknown]
  - Headache [Unknown]
  - Diarrhoea [Unknown]
  - Weight decreased [Unknown]
  - Fatigue [Unknown]
  - Rash [Unknown]
  - Unevaluable event [Unknown]
  - Overdose [Unknown]
  - Drug intolerance [Unknown]

NARRATIVE: CASE EVENT DATE: 20160301
